FAERS Safety Report 4614779-7 (Version None)
Quarter: 2005Q1

REPORT INFORMATION
  Report Type: 
  Country: None (occurrence: None)
  Receive Date: 20050322
  Receipt Date: 20050308
  Transmission Date: 20050727
  Serious: Yes (Other)
  Sender: FDA-Public Use
  Company Number: DE-JNJFOC-20050302052

PATIENT
  Age: 68 Year
  Sex: Female

DRUGS (3)
  1. DURAGESIC-100 [Suspect]
     Indication: DRUG USE FOR UNKNOWN INDICATION
     Route: 062
  2. MYDOCALM [Concomitant]
     Route: 049
  3. NOVAMINSULFON [Concomitant]
     Route: 049

REACTIONS (8)
  - ANXIETY [None]
  - DRY MOUTH [None]
  - FATIGUE [None]
  - HALLUCINATION [None]
  - HYPERHIDROSIS [None]
  - NAUSEA [None]
  - PARAESTHESIA [None]
  - RESPIRATORY DISORDER [None]
